FAERS Safety Report 9065071 (Version 1)
Quarter: 2013Q1

REPORT INFORMATION
  Report Type: Spontaneous
  Country: TW (occurrence: TW)
  Receive Date: 20130128
  Receipt Date: 20130128
  Transmission Date: 20140127
  Serious: Yes (Hospitalization)
  Sender: FDA-Public Use
  Company Number: TW-JNJFOC-20130111290

PATIENT
  Sex: Female
  Weight: 70 kg

DRUGS (3)
  1. HALDOL DECANOAS [Suspect]
     Indication: SCHIZOPHRENIA
     Route: 030
     Dates: start: 20120626, end: 20120927
  2. TRIHEXYPHENIDYL [Suspect]
     Indication: EXTRAPYRAMIDAL DISORDER
     Route: 048
     Dates: start: 20120626, end: 20120927
  3. ESZO (ESTAZOLAM) [Concomitant]
     Route: 065

REACTIONS (1)
  - Ileus [Unknown]
